FAERS Safety Report 21896887 (Version 1)
Quarter: 2023Q1

REPORT INFORMATION
  Report Type: Spontaneous
  Country: US (occurrence: None)
  Receive Date: 20230120
  Receipt Date: 20230120
  Transmission Date: 20230417
  Serious: Yes (Hospitalization)
  Sender: FDA-Public Use
  Company Number: None

PATIENT
  Age: 58 Year
  Sex: Male

DRUGS (2)
  1. CAPECITABINE [Suspect]
     Active Substance: CAPECITABINE
     Indication: Rectal cancer
     Dosage: 1500MG 2 TIMES DAILY ORAL?
     Dates: start: 20221214
  2. CAPECITABINE [Suspect]
     Active Substance: CAPECITABINE
     Indication: Rectal cancer
     Dosage: 300MG 2 TIMES DAILY ORAL?
     Route: 048
     Dates: start: 20221214

REACTIONS (2)
  - Stoma site reaction [None]
  - Extra dose administered [None]

NARRATIVE: CASE EVENT DATE: 20221218
